FAERS Safety Report 5362311-5 (Version None)
Quarter: 2007Q2

REPORT INFORMATION
  Report Type: 
  Country: None (occurrence: None)
  Receive Date: 20070619
  Receipt Date: 20070608
  Transmission Date: 20071010
  Serious: Yes (Hospitalization)
  Sender: FDA-Public Use
  Company Number: B0474750A

PATIENT
  Age: 47 Year
  Sex: Male
  Weight: 103 kg

DRUGS (3)
  1. AVANDIA [Suspect]
     Route: 048
     Dates: end: 20060827
  2. AVLOCARDYL [Suspect]
     Route: 048
     Dates: end: 20060827
  3. GLUCOPHAGE [Suspect]
     Route: 048
     Dates: end: 20060827

REACTIONS (4)
  - ABDOMINAL PAIN UPPER [None]
  - HEPATIC STEATOSIS [None]
  - LIPASE INCREASED [None]
  - PANCREATITIS ACUTE [None]
